FAERS Safety Report 7776564-7 (Version None)
Quarter: 2011Q3

REPORT INFORMATION
  Report Type: 
  Country: None (occurrence: None)
  Receive Date: 20110922
  Receipt Date: 20110922
  Transmission Date: 20111222
  Serious: Yes (Hospitalization)
  Sender: FDA-Public Use
  Company Number: None

PATIENT
  Sex: Female
  Weight: 101.3 kg

DRUGS (2)
  1. CARBOPLATIN [Suspect]
     Dosage: 900 MG
     Dates: end: 20110504
  2. TAXOL [Suspect]
     Dosage: 390 MG
     Dates: end: 20110504

REACTIONS (5)
  - PYREXIA [None]
  - PURULENT DISCHARGE [None]
  - FEELING ABNORMAL [None]
  - SUTURE RELATED COMPLICATION [None]
  - ULCER [None]
